FAERS Safety Report 24182158 (Version 1)
Quarter: 2024Q3

REPORT INFORMATION
  Report Type: Spontaneous
  Country: SE (occurrence: SE)
  Receive Date: 20240807
  Receipt Date: 20240807
  Transmission Date: 20241016
  Serious: Yes (Other)
  Sender: TAKEDA
  Company Number: None

PATIENT
  Age: 32 Year
  Sex: Female

DRUGS (4)
  1. BRINTELLIX [Suspect]
     Active Substance: VORTIOXETINE HYDROBROMIDE
     Indication: Depression
     Dosage: 10 MILLIGRAM, QD
     Route: 065
     Dates: start: 20240524
  2. GESTRINA [Concomitant]
     Indication: Product used for unknown indication
     Dosage: 75 MICROGRAM, QD
     Dates: start: 20220121
  3. DESLORATADINE [Concomitant]
     Active Substance: DESLORATADINE
     Indication: Product used for unknown indication
     Dosage: 5 MILLIGRAM, QD
     Dates: start: 20230602
  4. Aritonin [Concomitant]
     Indication: Product used for unknown indication
     Dosage: UNK
     Dates: start: 20240301

REACTIONS (2)
  - Pruritus [Not Recovered/Not Resolved]
  - Social anxiety disorder [Unknown]

NARRATIVE: CASE EVENT DATE: 20240607
